FAERS Safety Report 11600995 (Version 1)
Quarter: 2015Q4

REPORT INFORMATION
  Report Type: Spontaneous
  Country: US (occurrence: US)
  Receive Date: 20151006
  Receipt Date: 20151006
  Transmission Date: 20160304
  Serious: No
  Sender: FDA-Public Use
  Company Number: US-AMGEN-USASP2015011855

PATIENT
  Age: 75 Year
  Sex: Female

DRUGS (8)
  1. PLAVIX [Concomitant]
     Active Substance: CLOPIDOGREL BISULFATE
  2. VITAMIN D                          /00107901/ [Concomitant]
     Active Substance: ERGOCALCIFEROL
  3. PANTOPRAZOLE [Concomitant]
     Active Substance: PANTOPRAZOLE SODIUM
  4. ZOCOR [Concomitant]
     Active Substance: SIMVASTATIN
  5. LOSARTAN. [Concomitant]
     Active Substance: LOSARTAN
  6. ZOLOFT [Concomitant]
     Active Substance: SERTRALINE HYDROCHLORIDE
  7. CALCIUM [Concomitant]
     Active Substance: CALCIUM
  8. PROLIA [Suspect]
     Active Substance: DENOSUMAB
     Indication: OSTEOPOROSIS
     Dosage: UNK UNK, ONCE
     Route: 065
     Dates: start: 2014

REACTIONS (3)
  - Bone pain [Recovering/Resolving]
  - Hot flush [Recovered/Resolved]
  - Myalgia [Recovering/Resolving]
